FAERS Safety Report 11184766 (Version 2)
Quarter: 2015Q2

REPORT INFORMATION
  Report Type: Spontaneous
  Country: US (occurrence: US)
  Receive Date: 20150612
  Receipt Date: 20150622
  Transmission Date: 20150821
  Serious: Yes (Other)
  Sender: FDA-Public Use
  Company Number: US-BAYER-2015-325401

PATIENT
  Age: 6 Year
  Sex: Male
  Weight: 20 kg

DRUGS (3)
  1. KEPPRA [Concomitant]
     Active Substance: LEVETIRACETAM
  2. MULTIVITAMINS W/FLUORIDE [Concomitant]
  3. MIRALAX [Suspect]
     Active Substance: POLYETHYLENE GLYCOL 3350
     Indication: CONSTIPATION
     Dosage: 7 DF, ONCE
     Route: 048
     Dates: start: 20150530, end: 20150530

REACTIONS (9)
  - Seizure [Recovered/Resolved]
  - Anger [Recovered/Resolved]
  - Mood altered [Recovered/Resolved]
  - Seizure [Recovered/Resolved]
  - Off label use [Unknown]
  - Aggression [Recovered/Resolved]
  - Dysphemia [Not Recovered/Not Resolved]
  - Tremor [Recovered/Resolved]
  - Drug prescribing error [None]

NARRATIVE: CASE EVENT DATE: 20150530
